FAERS Safety Report 18948173 (Version 2)
Quarter: 2021Q2

REPORT INFORMATION
  Report Type: Spontaneous
  Country: US (occurrence: US)
  Receive Date: 20210226
  Receipt Date: 20210414
  Transmission Date: 20210717
  Serious: No
  Sender: FDA-Public Use
  Company Number: US-PFIZER INC-2021205439

PATIENT
  Age: 71 Year
  Sex: Female
  Weight: 63.5 kg

DRUGS (1)
  1. PREGABALIN. [Suspect]
     Active Substance: PREGABALIN
     Indication: POST HERPETIC NEURALGIA
     Dosage: 25 MG, 1X/DAY
     Route: 048
     Dates: start: 20210216

REACTIONS (6)
  - Gait disturbance [Unknown]
  - Tremor [Unknown]
  - Ear discomfort [Unknown]
  - Cognitive disorder [Unknown]
  - Drug ineffective [Unknown]
  - Taste disorder [Unknown]
